FAERS Safety Report 6033284-7 (Version None)
Quarter: 2009Q1

REPORT INFORMATION
  Report Type: 
  Country: None (occurrence: None)
  Receive Date: 20090109
  Receipt Date: 20081229
  Transmission Date: 20090719
  Serious: Yes (Other)
  Sender: FDA-Public Use
  Company Number: US-PFIZER INC-2008160614

PATIENT
  Sex: Male
  Weight: 102 kg

DRUGS (2)
  1. CHANTIX [Suspect]
     Indication: SMOKING CESSATION THERAPY
     Dosage: 0.5 MG, 1X/DAY
     Dates: start: 20081201
  2. LOTREL [Concomitant]
     Indication: HYPERTENSION
     Dosage: UNK

REACTIONS (7)
  - CONSTIPATION [None]
  - DEHYDRATION [None]
  - DIARRHOEA [None]
  - DIZZINESS [None]
  - FLATULENCE [None]
  - LOSS OF CONSCIOUSNESS [None]
  - SYNCOPE [None]
